FAERS Safety Report 12947733 (Version 1)
Quarter: 2016Q4

REPORT INFORMATION
  Report Type: Spontaneous
  Country: US (occurrence: US)
  Receive Date: 20161117
  Receipt Date: 20161117
  Transmission Date: 20170207
  Serious: Yes (Hospitalization, Other)
  Sender: FDA-Public Use
  Company Number: US-PAR PHARMACEUTICAL COMPANIES-2016SCPR016114

PATIENT
  Age: 57 Year
  Sex: Male

DRUGS (1)
  1. MINOCYCLINE HCL [Suspect]
     Active Substance: MINOCYCLINE HYDROCHLORIDE
     Indication: ROSACEA
     Dosage: UNK, UNKNOWN
     Route: 048

REACTIONS (3)
  - Toxicity to various agents [Unknown]
  - Normal pressure hydrocephalus [Recovered/Resolved]
  - Fall [Unknown]
